FAERS Safety Report 10748220 (Version 2)
Quarter: 2015Q1

REPORT INFORMATION
  Report Type: Spontaneous
  Country: CA (occurrence: None)
  Receive Date: 20150127
  Receipt Date: 20150309
  Transmission Date: 20150721
  Serious: Yes (Other)
  Sender: FDA-Public Use
  Company Number: AMAG201500029

PATIENT
  Age: 41 Year
  Sex: Female

DRUGS (3)
  1. FERAHEME [Suspect]
     Active Substance: FERUMOXYTOL NON-STOICHIOMETRIC MAGNETITE
     Indication: IRON DEFICIENCY ANAEMIA
     Dosage: SINGLE
     Route: 042
     Dates: start: 20140814, end: 20140814
  2. SOLUCORTEF (HYDROCORTISONE SODIUM SUCCINATE) [Concomitant]
  3. PANTOPRAZOLE (PANTOPRAZOLE) [Concomitant]
     Active Substance: PANTOPRAZOLE SODIUM

REACTIONS (3)
  - Dyspnoea [None]
  - Burning sensation [None]
  - Headache [None]

NARRATIVE: CASE EVENT DATE: 20140814
